FAERS Safety Report 7035469-X (Version None)
Quarter: 2010Q4

REPORT INFORMATION
  Report Type: 
  Country: None (occurrence: None)
  Receive Date: 20101008
  Receipt Date: 20100924
  Transmission Date: 20110411
  Serious: Yes (Disabling, Other)
  Sender: FDA-Public Use
  Company Number: TR-GENENTECH-306397

PATIENT
  Age: 73 Year
  Sex: Female

DRUGS (1)
  1. LUCENTIS [Suspect]
     Indication: MACULAR DEGENERATION
     Dosage: UNK
     Route: 031
     Dates: start: 20100322

REACTIONS (2)
  - RETINAL HAEMORRHAGE [None]
  - RETINAL PIGMENT EPITHELIAL TEAR [None]
